FAERS Safety Report 9007574 (Version 1)
Quarter: 2013Q1

REPORT INFORMATION
  Report Type: Spontaneous
  Country: US (occurrence: US)
  Receive Date: 20130111
  Receipt Date: 20130111
  Transmission Date: 20140127
  Serious: Yes (Other)
  Sender: FDA-Public Use
  Company Number: US-009507513-0901USA02247

PATIENT
  Sex: Female
  Weight: 43.54 kg

DRUGS (2)
  1. SINGULAIR [Suspect]
     Indication: ASTHMA
     Dosage: 4 MG, QD
     Route: 048
     Dates: start: 20050501, end: 20080525
  2. SINGULAIR [Suspect]
     Indication: ASTHMA
     Dosage: 10 MG, QD
     Route: 048
     Dates: start: 20080525, end: 20080907

REACTIONS (3)
  - Mood swings [Unknown]
  - Suicidal ideation [Unknown]
  - Weight increased [Not Recovered/Not Resolved]
